FAERS Safety Report 8343889-6 (Version None)
Quarter: 2012Q2

REPORT INFORMATION
  Report Type: 
  Country: None (occurrence: None)
  Receive Date: 20120504
  Receipt Date: 20120425
  Transmission Date: 20120825
  Serious: Yes (Hospitalization)
  Sender: FDA-Public Use
  Company Number: DKLU1078863

PATIENT
  Age: 44 Year
  Sex: Female

DRUGS (1)
  1. SABRIL [Suspect]
     Indication: CONVULSION
     Dosage: 250 MG MILLIGRAM(S), 2 IN 1 D, ORAL
     Route: 048
     Dates: start: 20100301

REACTIONS (3)
  - PAIN [None]
  - TREMOR [None]
  - FALL [None]
